FAERS Safety Report 14071615 (Version 1)
Quarter: 2017Q4

REPORT INFORMATION
  Report Type: Spontaneous
  Country: GB (occurrence: GB)
  Receive Date: 20171011
  Receipt Date: 20171011
  Transmission Date: 20180321
  Serious: Yes (Other)
  Sender: FDA-Public Use
  Company Number: GB-SUN PHARMACEUTICAL INDUSTRIES LTD-2017RR-151914

PATIENT
  Age: 44 Year
  Sex: Female
  Weight: 64.4 kg

DRUGS (3)
  1. ZOPICLONE [Suspect]
     Active Substance: ZOPICLONE
     Indication: INSOMNIA
     Dosage: 1 DF, QD, AT NIGHT
     Route: 065
     Dates: start: 20170704, end: 20170810
  2. CITALOPRAM [Suspect]
     Active Substance: CITALOPRAM HYDROBROMIDE
     Indication: ANXIETY
     Dosage: 20 MG, UNK
     Route: 065
     Dates: start: 20170723, end: 20170810
  3. DIAZEPAM. [Suspect]
     Active Substance: DIAZEPAM
     Indication: PRODUCT USED FOR UNKNOWN INDICATION
     Dosage: UNK
     Route: 065
     Dates: end: 201708

REACTIONS (11)
  - Tearfulness [Recovered/Resolved]
  - Panic attack [Recovered/Resolved]
  - Anxiety [Not Recovered/Not Resolved]
  - Palpitations [Not Recovered/Not Resolved]
  - Dry skin [Recovered/Resolved]
  - Mental disorder [Recovered/Resolved]
  - Decreased appetite [Recovered/Resolved]
  - Feeling jittery [Recovered/Resolved]
  - Diarrhoea [Recovered/Resolved]
  - Suicidal ideation [Recovered/Resolved]
  - Burning sensation [Recovered/Resolved]
